FAERS Safety Report 26140338 (Version 1)
Quarter: 2025Q4

REPORT INFORMATION
  Report Type: Report from Study
  Country: CN (occurrence: CN)
  Receive Date: 20251210
  Receipt Date: 20251210
  Transmission Date: 20260118
  Serious: Yes (Hospitalization)
  Sender: JOHNSON AND JOHNSON
  Company Number: CN-JNJFOC-20251203818

PATIENT
  Age: 70 Year
  Sex: Female

DRUGS (1)
  1. RYBREVANT [Suspect]
     Active Substance: AMIVANTAMAB-VMJW
     Indication: Lung neoplasm malignant
     Dosage: 1050MG/INJECTION IN VIAL/350MG/ONCE EVERY WEEK/INTRAVENOUS INFUSION
     Route: 042

REACTIONS (1)
  - Hypotension [Not Recovered/Not Resolved]
